FAERS Safety Report 5955945-8 (Version None)
Quarter: 2008Q4

REPORT INFORMATION
  Report Type: 
  Country: None (occurrence: None)
  Receive Date: 20081112
  Receipt Date: 20081103
  Transmission Date: 20090506
  Serious: Yes (Life-Threatening, Hospitalization, Other)
  Sender: FDA-Public Use
  Company Number: DSA_32404_2008

PATIENT
  Sex: Male
  Weight: 63.5036 kg

DRUGS (3)
  1. ATIVAN [Suspect]
     Indication: ANXIETY
     Dosage: 0.5 MG PRN ORAL, 2-3 MG, DF 4 TIMES DAILY
     Dates: start: 20050701
  2. ATIVAN [Suspect]
     Indication: ANXIETY
     Dosage: 0.5 MG PRN ORAL, 2-3 MG, DF 4 TIMES DAILY
     Dates: start: 20080101
  3. ATIVAN [Suspect]
     Indication: ANXIETY
     Dosage: 0.5 MG PRN ORAL, 2-3 MG, DF 4 TIMES DAILY
     Dates: start: 20081001

REACTIONS (12)
  - DRUG DEPENDENCE [None]
  - DRUG WITHDRAWAL SYNDROME [None]
  - FLUSHING [None]
  - GRAND MAL CONVULSION [None]
  - HAEMORRHAGE [None]
  - HEAD BANGING [None]
  - HYPERHIDROSIS [None]
  - INCREASED TENDENCY TO BRUISE [None]
  - PANIC ATTACK [None]
  - TARDIVE DYSKINESIA [None]
  - TIC [None]
  - VOMITING [None]
